FAERS Safety Report 7732623-6 (Version None)
Quarter: 2011Q3

REPORT INFORMATION
  Report Type: 
  Country: None (occurrence: None)
  Receive Date: 20110906
  Receipt Date: 20110825
  Transmission Date: 20111222
  Serious: Yes (Hospitalization)
  Sender: FDA-Public Use
  Company Number: US-BAYER-2011-015937

PATIENT
  Age: 30 Year
  Sex: Female
  Weight: 68 kg

DRUGS (5)
  1. IBUPROFEN [Concomitant]
  2. MULTI-VITAMIN [Concomitant]
  3. YAZ [Suspect]
     Indication: PRODUCT USED FOR UNKNOWN INDICATION
     Dosage: UNK
     Dates: start: 20060101, end: 20090501
  4. PAXIL [Concomitant]
  5. LORA TAB [Concomitant]

REACTIONS (3)
  - ANXIETY [None]
  - PAIN [None]
  - GALLBLADDER DISORDER [None]
